FAERS Safety Report 4333851-2 (Version None)
Quarter: 2004Q2

REPORT INFORMATION
  Report Type: 
  Country: None (occurrence: None)
  Receive Date: 20040402
  Receipt Date: 20040319
  Transmission Date: 20050107
  Serious: Yes (Life-Threatening)
  Sender: FDA-Public Use
  Company Number: S04-USA-01555-01

PATIENT
  Sex: 0

DRUGS (1)
  1. NAMENDA [Suspect]

REACTIONS (2)
  - COMA [None]
  - HEPATIC FAILURE [None]
